FAERS Safety Report 23496698 (Version 1)
Quarter: 2024Q1

REPORT INFORMATION
  Report Type: Spontaneous
  Country: US (occurrence: None)
  Receive Date: 20240207
  Receipt Date: 20240207
  Transmission Date: 20240410
  Serious: Yes (Hospitalization)
  Sender: FDA-Public Use
  Company Number: None

PATIENT
  Sex: Female

DRUGS (3)
  1. OPSUMIT [Suspect]
     Active Substance: MACITENTAN
     Indication: Pulmonary arterial hypertension
     Dosage: FREQUENCY : DAILY;?
     Route: 048
     Dates: start: 202310
  2. TADALAFIL [Concomitant]
     Active Substance: TADALAFIL
  3. REMODULIN MDV [Concomitant]

REACTIONS (5)
  - Malaise [None]
  - Nausea [None]
  - Hypophagia [None]
  - Weight decreased [None]
  - Respiration abnormal [None]
